FAERS Safety Report 21489426 (Version 4)
Quarter: 2023Q2

REPORT INFORMATION
  Report Type: Report from Study
  Country: US (occurrence: US)
  Receive Date: 20221021
  Receipt Date: 20230405
  Transmission Date: 20230722
  Serious: Yes (Other)
  Sender: FDA-Public Use
  Company Number: US-ABBVIE-4168070

PATIENT
  Age: 28 Year
  Sex: Female

DRUGS (3)
  1. HUMIRA [Suspect]
     Active Substance: ADALIMUMAB
     Indication: Hidradenitis
     Dosage: CITRATE FREE
     Route: 058
     Dates: start: 20211022
  2. HUMIRA [Suspect]
     Active Substance: ADALIMUMAB
     Route: 058
     Dates: start: 20221226
  3. PFIZER-BIONTECH COVID-19 VACCINE [Concomitant]
     Active Substance: TOZINAMERAN
     Indication: COVID-19 immunisation
     Dosage: 1-1-ONCE
     Route: 030

REACTIONS (19)
  - Mydriasis [Recovering/Resolving]
  - COVID-19 [Not Recovered/Not Resolved]
  - Infection [Recovering/Resolving]
  - Hidradenitis [Recovered/Resolved]
  - Inflammation [Unknown]
  - Headache [Recovering/Resolving]
  - Migraine [Unknown]
  - Inflammation [Unknown]
  - Asthenia [Unknown]
  - Stress [Unknown]
  - Fluid intake reduced [Unknown]
  - Photopsia [Unknown]
  - Injection site pain [Recovered/Resolved]
  - Injection site reaction [Recovered/Resolved]
  - Deformity thorax [Unknown]
  - Arthralgia [Not Recovered/Not Resolved]
  - Nausea [Not Recovered/Not Resolved]
  - Device issue [Unknown]
  - Anxiety [Unknown]

NARRATIVE: CASE EVENT DATE: 20221001
